FAERS Safety Report 8329306-0 (Version None)
Quarter: 2012Q2

REPORT INFORMATION
  Report Type: 
  Country: None (occurrence: None)
  Receive Date: 20120502
  Receipt Date: 20111115
  Transmission Date: 20120825
  Serious: Yes (Other)
  Sender: FDA-Public Use
  Company Number: US-ASTRAZENECA-2011SE54016

PATIENT
  Age: 71 Year
  Sex: Female
  Weight: 55.8 kg

DRUGS (9)
  1. VITAMIN C [Concomitant]
     Dosage: DAILY DOSAGE:1000 MG
     Dates: start: 20110401
  2. HYDROCODONE [Concomitant]
     Indication: PAIN
     Dosage: DAILY DOSAGE: 7.5 MG
  3. NORVASC [Concomitant]
     Indication: HYPERTENSION
     Dates: start: 20070101
  4. FASLODEX [Suspect]
     Route: 030
     Dates: start: 20100801
  5. FENTYL [Concomitant]
     Indication: PAIN
  6. FASLODEX [Suspect]
     Indication: BREAST CANCER METASTATIC
     Route: 030
     Dates: start: 20100401
  7. EXCHIVA [Concomitant]
     Dates: start: 20110401
  8. METOPROLOL TARTRATE [Concomitant]
     Indication: HYPERTENSION
     Dates: start: 20070101
  9. CALCIUM [Concomitant]
     Dosage: DAILY DOSAGE: 500 MG
     Dates: start: 20110401

REACTIONS (4)
  - INJECTION SITE MASS [None]
  - PRURITUS [None]
  - INJECTION SITE RASH [None]
  - METASTASES TO BONE [None]
